FAERS Safety Report 5918428-7 (Version None)
Quarter: 2008Q4

REPORT INFORMATION
  Report Type: 
  Country: None (occurrence: None)
  Receive Date: 20081015
  Receipt Date: 20081010
  Transmission Date: 20090506
  Serious: Yes (Death)
  Sender: FDA-Public Use
  Company Number: NL-RANBAXY-2008RR-18089

PATIENT
  Age: 91 Year
  Sex: Male

DRUGS (7)
  1. ENALAPRIL MALEATE [Suspect]
     Dosage: 5 MG, QD
     Dates: start: 20010101
  2. DIGOXIN [Suspect]
     Indication: CARDIAC FAILURE
     Dosage: 0.062 MG, QD
  3. SPIRONOLACTONE [Suspect]
     Indication: CARDIAC FAILURE
     Dosage: 25 MG, QD
  4. FUROSEMIDE [Concomitant]
     Indication: CARDIAC FAILURE
     Dosage: 40 MG, QD
     Dates: start: 20010101
  5. FUROSEMIDE [Concomitant]
     Dosage: 40 MG, BID
  6. FUROSEMIDE [Concomitant]
     Dosage: 20 MG, BID
  7. ACENOCOUMAROL [Concomitant]
     Indication: CARDIAC FAILURE

REACTIONS (1)
  - HYPERKALAEMIA [None]
